FAERS Safety Report 8938340 (Version 3)
Quarter: 2013Q1

REPORT INFORMATION
  Report Type: Spontaneous
  Country: US (occurrence: US)
  Receive Date: 20121203
  Receipt Date: 20130204
  Transmission Date: 20140127
  Serious: Yes (Other)
  Sender: FDA-Public Use
  Company Number: PHEH2012US023553

PATIENT
  Age: 51 Year
  Sex: Female
  Weight: 57.6 kg

DRUGS (7)
  1. TASIGNA [Suspect]
     Dosage: 300 MG, BID
     Route: 048
  2. ATIVAN [Concomitant]
     Dosage: 0.5 MG, UNK
  3. PREMARIN [Concomitant]
     Dosage: 0.3 MG, UNK
  4. ALBUTEROL [Concomitant]
     Dosage: 2 MG, UNK
  5. CALCIUM 600 [Concomitant]
     Dosage: UNK UKN, UNK
  6. ADVIL [Concomitant]
     Dosage: 200 MG, UNK
  7. VITAMIN D [Concomitant]

REACTIONS (1)
  - Pneumonia [Recovered/Resolved]
